FAERS Safety Report 13004010 (Version 1)
Quarter: 2016Q4

REPORT INFORMATION
  Report Type: Report from Study
  Country: US (occurrence: US)
  Receive Date: 20161206
  Receipt Date: 20161206
  Transmission Date: 20170207
  Serious: Yes (Other)
  Sender: FDA-Public Use
  Company Number: US-JAZZ-2016-US-020798

PATIENT
  Sex: Female

DRUGS (1)
  1. XYREM [Suspect]
     Active Substance: SODIUM OXYBATE
     Indication: PRODUCT USED FOR UNKNOWN INDICATION

REACTIONS (7)
  - Malaise [Recovered/Resolved]
  - Vomiting [Unknown]
  - Therapeutic response unexpected [Unknown]
  - Oesophagitis [Unknown]
  - Nasal congestion [Unknown]
  - Dysgeusia [Unknown]
  - Weight decreased [Unknown]
